FAERS Safety Report 4697180-X (Version None)
Quarter: 2005Q2

REPORT INFORMATION
  Report Type: 
  Country: None (occurrence: None)
  Receive Date: 20050621
  Receipt Date: 20050621
  Transmission Date: 20051028
  Serious: Yes (Other)
  Sender: FDA-Public Use
  Company Number: None

PATIENT
  Age: 18 Year
  Sex: Male
  Weight: 93 kg

DRUGS (5)
  1. CLOZAPINE [Suspect]
     Indication: SCHIZOPHRENIA
     Dosage: 150 MG PO BID
     Route: 048
     Dates: start: 20050408, end: 20050425
  2. DEPAKOTE [Concomitant]
  3. CONCERTA [Concomitant]
  4. BENZTROPINE [Concomitant]
  5. ZYPREXA [Concomitant]

REACTIONS (10)
  - BLOOD PRESSURE INCREASED [None]
  - CONGESTIVE CARDIOMYOPATHY [None]
  - COXSACKIE VIRUS SEROLOGY TEST POSITIVE [None]
  - EOSINOPHIL COUNT INCREASED [None]
  - HYPERHIDROSIS [None]
  - MALAISE [None]
  - PHARYNGOLARYNGEAL PAIN [None]
  - PYREXIA [None]
  - TACHYCARDIA [None]
  - VOMITING [None]
